FAERS Safety Report 9733930 (Version 3)
Quarter: 2013Q4

REPORT INFORMATION
  Report Type: Spontaneous
  Country: JP (occurrence: JP)
  Receive Date: 20131205
  Receipt Date: 20131216
  Transmission Date: 20140711
  Serious: Yes (Hospitalization)
  Sender: FDA-Public Use
  Company Number: JP-PFIZER INC-2013337969

PATIENT
  Age: 81 Year
  Sex: Female

DRUGS (4)
  1. ALDACTONE A [Suspect]
     Dosage: 25 MG, 1X/DAY
     Route: 048
     Dates: start: 20131111, end: 20131125
  2. LASIX [Concomitant]
     Dosage: 10 MG, 1X/DAY
     Route: 048
  3. RENIVACE [Concomitant]
     Dosage: 1.25 MG, 1X/DAY
     Route: 048
  4. DEPAS [Concomitant]
     Dosage: 1.5 MG, 1X/DAY
     Route: 048

REACTIONS (8)
  - Nausea [Recovered/Resolved]
  - Hypoaesthesia [Recovered/Resolved]
  - Headache [Recovered/Resolved]
  - Pyrexia [Recovered/Resolved]
  - Hyponatraemia [Recovered/Resolved]
  - Depression [Recovered/Resolved]
  - Anxiety [Recovered/Resolved]
  - Transient ischaemic attack [Recovered/Resolved]
